FAERS Safety Report 7584861-3 (Version None)
Quarter: 2011Q2

REPORT INFORMATION
  Report Type: 
  Country: None (occurrence: None)
  Receive Date: 20110630
  Receipt Date: 20110624
  Transmission Date: 20111010
  Serious: Yes (Hospitalization, Other)
  Sender: FDA-Public Use
  Company Number: PHEH2009US04496

PATIENT
  Sex: Female

DRUGS (39)
  1. ZOMETA [Suspect]
     Indication: BONE LOSS
     Dosage: UNK
     Dates: start: 20040601, end: 20060907
  2. FULVESTRANT [Concomitant]
  3. METFORMIN HCL [Concomitant]
     Dosage: 500 XR
  4. DOXORUBICIN HCL [Concomitant]
     Dosage: UNK
     Dates: start: 20110215
  5. PROMETHAZINE HCL [Concomitant]
  6. CEFOTETAN [Concomitant]
  7. TAMOXIFEN CITRATE [Concomitant]
  8. FENOFIBRIC ACID [Concomitant]
  9. DULCOLAX [Concomitant]
  10. KEFLEX [Concomitant]
  11. CLINDAMYCIN [Concomitant]
     Dosage: UNK
     Route: 017
     Dates: start: 20060929
  12. COZAAR [Concomitant]
  13. METOCLOPRAMIDE [Concomitant]
     Dosage: 10 MG, Q4H PRN
     Route: 042
     Dates: start: 20040527
  14. ZOMETA [Suspect]
     Indication: OSTEOPOROSIS
  15. EXEMESTANE [Concomitant]
     Dosage: UNK
     Dates: start: 20070701, end: 20090818
  16. LETROZOLE [Concomitant]
  17. AROMASIN [Concomitant]
     Dosage: 25
  18. ATIVAN [Concomitant]
  19. DILAUDID [Concomitant]
     Dosage: 2 MG, EVERY 6 HOURS
  20. BEVACIZUMAB [Concomitant]
  21. EMLA [Concomitant]
  22. AMOXICILLIN AND CLAVULANATE POTASSIUM [Concomitant]
     Dosage: 500 MG, BID
     Route: 048
  23. INSULIN ASPART [Concomitant]
     Route: 058
  24. DIPHENHYDRAMINE [Concomitant]
     Dosage: 25 MG, EVERY 4 HOURS
     Route: 048
     Dates: start: 20041014, end: 20050818
  25. NALOXONE [Concomitant]
     Dosage: UNK
     Route: 042
     Dates: start: 20041014
  26. ZOLPIDEM TARTRATE [Concomitant]
     Dosage: 10 MG, QD AT BED TIME AS NEEDED
     Route: 048
     Dates: start: 20040527, end: 20050323
  27. LEXAPRO [Concomitant]
     Dosage: 10
  28. HYZAAR [Concomitant]
     Dosage: 100/25
  29. CITALOPRAM HYDROBROMIDE [Concomitant]
     Dosage: 40
  30. CYMBALTA [Concomitant]
     Dosage: 60
  31. PACLITAXEL [Concomitant]
     Dosage: UNK
     Dates: start: 20090623, end: 20100405
  32. MORPHINE SULFATE [Concomitant]
  33. DEXAMETHASONE [Concomitant]
  34. CIPROFLOXACIN [Concomitant]
     Dosage: 250
  35. AMOXICILLIN [Concomitant]
  36. HEPARIN [Concomitant]
     Dosage: 5000 U, EVERY 8 HOURS
     Route: 058
  37. DECADRON [Concomitant]
     Route: 042
  38. FAMOTIDINE [Concomitant]
     Dosage: UNK
     Dates: start: 20041014
  39. MYLANTA [Concomitant]

REACTIONS (66)
  - GRANULOMA [None]
  - PARAESTHESIA [None]
  - DYSGEUSIA [None]
  - WEIGHT DECREASED [None]
  - LEIOMYOMA [None]
  - NECK PAIN [None]
  - DEPRESSION [None]
  - RENAL CYST [None]
  - MUSCULAR WEAKNESS [None]
  - MUSCULOSKELETAL STIFFNESS [None]
  - MUSCLE TWITCHING [None]
  - ARTHRALGIA [None]
  - EYELID PTOSIS [None]
  - EPISTAXIS [None]
  - FEMUR FRACTURE [None]
  - PATHOLOGICAL FRACTURE [None]
  - SPINAL OSTEOARTHRITIS [None]
  - URINARY TRACT INFECTION [None]
  - BONE PAIN [None]
  - SEROSITIS [None]
  - OSTEONECROSIS OF JAW [None]
  - OBESITY [None]
  - HYPERTENSION [None]
  - FATIGUE [None]
  - PAIN IN EXTREMITY [None]
  - ABDOMINAL HERNIA [None]
  - BONE LESION [None]
  - METASTASES TO BONE [None]
  - BASAL CELL CARCINOMA [None]
  - HYPOAESTHESIA [None]
  - METASTASES TO PELVIS [None]
  - CERVICITIS [None]
  - UTERINE CERVICAL SQUAMOUS METAPLASIA [None]
  - PERSONALITY CHANGE [None]
  - DEHYDRATION [None]
  - CUTIS LAXA [None]
  - ABDOMINAL PAIN [None]
  - COUGH [None]
  - DYSPHONIA [None]
  - FOOT FRACTURE [None]
  - BACK PAIN [None]
  - NIGHT SWEATS [None]
  - SNORING [None]
  - NAUSEA [None]
  - VOMITING [None]
  - INJURY [None]
  - BREAST CANCER [None]
  - METASTASES TO LIVER [None]
  - THORACIC VERTEBRAL FRACTURE [None]
  - SLEEP APNOEA SYNDROME [None]
  - CHEST PAIN [None]
  - OSTEOARTHRITIS [None]
  - DIABETES MELLITUS [None]
  - MUSCLE SPASMS [None]
  - HYPOKALAEMIA [None]
  - OSTEOPENIA [None]
  - HYPERTRIGLYCERIDAEMIA [None]
  - NEOPLASM MALIGNANT [None]
  - HEPATIC LESION [None]
  - NEUROFIBROMA [None]
  - PAIN [None]
  - OSTEOLYSIS [None]
  - HYPERGLYCAEMIA [None]
  - GOITRE [None]
  - SWELLING FACE [None]
  - ABDOMINAL DISTENSION [None]
